FAERS Safety Report 25151878 (Version 1)
Quarter: 2025Q2

REPORT INFORMATION
  Report Type: Spontaneous
  Country: ES (occurrence: ES)
  Receive Date: 20250402
  Receipt Date: 20250402
  Transmission Date: 20250717
  Serious: Yes (Hospitalization)
  Sender: MYLAN
  Company Number: None

PATIENT
  Age: 91 Year
  Sex: Male

DRUGS (16)
  1. LYRICA [Interacting]
     Active Substance: PREGABALIN
     Indication: Diabetic mononeuropathy
     Dosage: 25 MILLIGRAM, BID (56 CAPSULE)
     Dates: start: 20220101
  2. LYRICA [Interacting]
     Active Substance: PREGABALIN
     Dosage: 25 MILLIGRAM, BID (56 CAPSULE)
     Route: 048
     Dates: start: 20220101
  3. LYRICA [Interacting]
     Active Substance: PREGABALIN
     Dosage: 25 MILLIGRAM, BID (56 CAPSULE)
     Route: 048
     Dates: start: 20220101
  4. LYRICA [Interacting]
     Active Substance: PREGABALIN
     Dosage: 25 MILLIGRAM, BID (56 CAPSULE)
     Dates: start: 20220101
  5. HYDROCHLOROTHIAZIDE [Interacting]
     Active Substance: HYDROCHLOROTHIAZIDE
     Indication: Essential hypertension
     Dosage: 50 MILLIGRAM, QD
     Dates: start: 20210601
  6. HYDROCHLOROTHIAZIDE [Interacting]
     Active Substance: HYDROCHLOROTHIAZIDE
     Dosage: 50 MILLIGRAM, QD
     Route: 048
     Dates: start: 20210601
  7. HYDROCHLOROTHIAZIDE [Interacting]
     Active Substance: HYDROCHLOROTHIAZIDE
     Dosage: 50 MILLIGRAM, QD
     Route: 048
     Dates: start: 20210601
  8. HYDROCHLOROTHIAZIDE [Interacting]
     Active Substance: HYDROCHLOROTHIAZIDE
     Dosage: 50 MILLIGRAM, QD
     Dates: start: 20210601
  9. METFORMIN HYDROCHLORIDE\SITAGLIPTIN PHOSPHATE [Interacting]
     Active Substance: METFORMIN HYDROCHLORIDE\SITAGLIPTIN PHOSPHATE
     Indication: Diabetes mellitus
     Dosage: 1 DOSAGE FORM, BID
     Dates: start: 20211101
  10. METFORMIN HYDROCHLORIDE\SITAGLIPTIN PHOSPHATE [Interacting]
     Active Substance: METFORMIN HYDROCHLORIDE\SITAGLIPTIN PHOSPHATE
     Dosage: 1 DOSAGE FORM, BID
     Route: 048
     Dates: start: 20211101
  11. METFORMIN HYDROCHLORIDE\SITAGLIPTIN PHOSPHATE [Interacting]
     Active Substance: METFORMIN HYDROCHLORIDE\SITAGLIPTIN PHOSPHATE
     Dosage: 1 DOSAGE FORM, BID
     Route: 048
     Dates: start: 20211101
  12. METFORMIN HYDROCHLORIDE\SITAGLIPTIN PHOSPHATE [Interacting]
     Active Substance: METFORMIN HYDROCHLORIDE\SITAGLIPTIN PHOSPHATE
     Dosage: 1 DOSAGE FORM, BID
     Dates: start: 20211101
  13. Furosemida vir [Concomitant]
     Indication: Essential hypertension
     Dosage: 40 MILLIGRAM, QD (30 TABLET)
     Dates: start: 20210401
  14. Furosemida vir [Concomitant]
     Dosage: 40 MILLIGRAM, QD (30 TABLET)
     Route: 048
     Dates: start: 20210401
  15. Furosemida vir [Concomitant]
     Dosage: 40 MILLIGRAM, QD (30 TABLET)
     Route: 048
     Dates: start: 20210401
  16. Furosemida vir [Concomitant]
     Dosage: 40 MILLIGRAM, QD (30 TABLET)
     Dates: start: 20210401

REACTIONS (5)
  - Lactic acidosis [Recovering/Resolving]
  - Hypercalcaemia [Recovering/Resolving]
  - Anuria [Recovering/Resolving]
  - Acute kidney injury [Recovering/Resolving]
  - Drug interaction [Unknown]

NARRATIVE: CASE EVENT DATE: 20250223
